FAERS Safety Report 23422744 (Version 2)
Quarter: 2024Q1

REPORT INFORMATION
  Report Type: Spontaneous
  Country: BE (occurrence: BE)
  Receive Date: 20240119
  Receipt Date: 20240202
  Transmission Date: 20240410
  Serious: Yes (Other)
  Sender: FDA-Public Use
  Company Number: BE-009507513-2401BEL008609

PATIENT
  Age: 11 Year
  Sex: Female
  Weight: 24 kg

DRUGS (10)
  1. LETERMOVIR [Suspect]
     Active Substance: LETERMOVIR
     Indication: Prophylaxis against transplant rejection
     Dosage: 480 MILLIGRAM, QD
     Route: 048
  2. LETERMOVIR [Suspect]
     Active Substance: LETERMOVIR
     Dosage: 480 MILLIGRAM, QD
     Route: 048
     Dates: start: 20231026, end: 20231104
  3. LETERMOVIR [Suspect]
     Active Substance: LETERMOVIR
     Dosage: 480 MILLIGRAM, QD
     Route: 048
     Dates: start: 20231201, end: 20231207
  4. DEXPANTHENOL [Concomitant]
     Active Substance: DEXPANTHENOL
     Indication: Antacid therapy
     Dosage: 40 MILLIGRAM, QD
     Route: 048
     Dates: start: 20230629
  5. FLUCONAZOLE [Concomitant]
     Active Substance: FLUCONAZOLE
     Indication: Prophylaxis
     Dosage: 200 MILLIGRAM, QD
     Route: 048
     Dates: start: 20230629
  6. CHOLECALCIFEROL [Concomitant]
     Active Substance: CHOLECALCIFEROL
     Indication: Supplementation therapy
     Dosage: 25000 DOSAGE FORM, QD FOR 15 DAYS
     Route: 048
     Dates: start: 20230629
  7. BACTRIM [Concomitant]
     Active Substance: SULFAMETHOXAZOLE\TRIMETHOPRIM
     Indication: Prophylaxis
     Dosage: 400 MILLIGRAM, BID
     Route: 048
     Dates: start: 20230629
  8. THYROXINE [Concomitant]
     Active Substance: LEVOTHYROXINE
     Indication: Hypothyroidism
     Dosage: 50 MICROGRAM, QD
     Route: 048
     Dates: start: 20230629
  9. B MAGNUM [Concomitant]
     Indication: Hypomagnesaemia
     Dosage: 750 MILLIGRAM, QD
     Route: 048
     Dates: start: 20230629
  10. FOLIC ACID [Concomitant]
     Active Substance: FOLIC ACID
     Indication: Supplementation therapy
     Dosage: 4 MILLIGRAM, QD
     Route: 048
     Dates: start: 20230629

REACTIONS (6)
  - Hypokalaemia [Recovered/Resolved]
  - Cytomegalovirus infection reactivation [Unknown]
  - Hypokalaemia [Recovered/Resolved]
  - Hypokalaemia [Recovered/Resolved]
  - Off label use [Recovered/Resolved]
  - Cytomegalovirus test positive [Unknown]

NARRATIVE: CASE EVENT DATE: 20230101
